FAERS Safety Report 23996447 (Version 1)
Quarter: 2024Q2

REPORT INFORMATION
  Report Type: Spontaneous
  Country: US (occurrence: US)
  Receive Date: 20240620
  Receipt Date: 20240620
  Transmission Date: 20240716
  Serious: Yes (Other)
  Sender: FDA-Public Use
  Company Number: US-SUNOVION-2022SUN000013

PATIENT

DRUGS (2)
  1. APTIOM [Suspect]
     Active Substance: ESLICARBAZEPINE ACETATE
     Indication: Product used for unknown indication
     Dosage: 1600 MG, QD (2X 800 MG DAILY IN THE MORNING)
     Route: 048
  2. APTIOM [Suspect]
     Active Substance: ESLICARBAZEPINE ACETATE
     Dosage: 2000 MG, QD (2 TABS OF 800MG AND 1 TAB OF 400MG)
     Route: 048

REACTIONS (2)
  - Seizure [Unknown]
  - Overdose [Unknown]
